FAERS Safety Report 10280544 (Version 2)
Quarter: 2014Q3

REPORT INFORMATION
  Report Type: Spontaneous
  Country: US (occurrence: US)
  Receive Date: 20140707
  Receipt Date: 20140707
  Transmission Date: 20150326
  Serious: Yes (Hospitalization)
  Sender: FDA-Public Use
  Company Number: PHEH2013US021621

PATIENT
  Sex: Female

DRUGS (6)
  1. GLEEVEC [Suspect]
     Active Substance: IMATINIB MESYLATE
     Dosage: 400 MG
  2. GLEEVEC [Suspect]
     Active Substance: IMATINIB MESYLATE
     Indication: CHRONIC MYELOID LEUKAEMIA
     Dosage: 400 MG
     Dates: start: 20131001
  3. HYDREA [Concomitant]
     Active Substance: HYDROXYUREA
     Dosage: UNK UKN, UNK
  4. ALLOPURINOL. [Concomitant]
     Active Substance: ALLOPURINOL
     Dosage: UNK UKN, UNK
  5. TASIGNA [Concomitant]
     Active Substance: NILOTINIB
     Dosage: UNK UKN, UNK
  6. MULTI-VIT [Concomitant]
     Active Substance: VITAMINS
     Dosage: UNK UKN, UNK

REACTIONS (10)
  - Nausea [Unknown]
  - Pain [Unknown]
  - Thrombocytopenia [Unknown]
  - Asthenia [Unknown]
  - Leukocytosis [Unknown]
  - Full blood count decreased [Unknown]
  - Decreased appetite [Unknown]
  - Red blood cell count decreased [Unknown]
  - Haemoglobin decreased [Unknown]
  - Weight decreased [Unknown]
